FAERS Safety Report 13081157 (Version 3)
Quarter: 2017Q2

REPORT INFORMATION
  Report Type: Report from Study
  Country: CN (occurrence: CN)
  Receive Date: 20170103
  Receipt Date: 20170418
  Transmission Date: 20170830
  Serious: Yes (Death, Hospitalization)
  Sender: FDA-Public Use
  Company Number: PHHY2016CN180252

PATIENT
  Age: 41 Year
  Sex: Female

DRUGS (4)
  1. GLIVEC [Suspect]
     Active Substance: IMATINIB MESYLATE
     Indication: CHRONIC MYELOID LEUKAEMIA
     Dosage: 400 MG, QD
     Route: 048
     Dates: start: 20131203
  2. HYDROXYUREA. [Suspect]
     Active Substance: HYDROXYUREA
     Indication: CHRONIC MYELOID LEUKAEMIA
     Dosage: UNK
     Route: 048
     Dates: start: 2002
  3. GLIVEC [Suspect]
     Active Substance: IMATINIB MESYLATE
     Dosage: 400 MG, QD
     Route: 048
     Dates: start: 20160923
  4. INTERFERON [Suspect]
     Active Substance: INTERFERON
     Indication: CHRONIC MYELOID LEUKAEMIA
     Dosage: 50 UG, (EVERY OTHER DAY)
     Route: 058
     Dates: start: 20160923

REACTIONS (5)
  - Cardiac failure [Fatal]
  - Respiratory failure [Fatal]
  - Blast crisis in myelogenous leukaemia [Fatal]
  - Drug ineffective [Unknown]
  - Hyperpyrexia [Unknown]

NARRATIVE: CASE EVENT DATE: 20160923
